FAERS Safety Report 16154616 (Version 2)
Quarter: 2025Q2

REPORT INFORMATION
  Report Type: Report from Study
  Country: US (occurrence: US)
  Receive Date: 20190403
  Receipt Date: 20250626
  Transmission Date: 20250717
  Serious: No
  Sender: TAKEDA
  Company Number: US-SHIRE-US201802168

PATIENT
  Sex: Female

DRUGS (4)
  1. TEDUGLUTIDE [Suspect]
     Active Substance: TEDUGLUTIDE
     Indication: Short-bowel syndrome
     Dosage: 2.95 MILLIGRAM, QD
     Dates: start: 20170911
  2. TEDUGLUTIDE [Suspect]
     Active Substance: TEDUGLUTIDE
  3. TEDUGLUTIDE [Suspect]
     Active Substance: TEDUGLUTIDE
     Dosage: 2.7 MILLIGRAM, QD
  4. TEDUGLUTIDE [Suspect]
     Active Substance: TEDUGLUTIDE
     Dosage: 2.95 MILLIGRAM, QD

REACTIONS (3)
  - Abdominal discomfort [Unknown]
  - Inappropriate schedule of product administration [Recovered/Resolved]
  - Rash pruritic [Recovering/Resolving]
